FAERS Safety Report 7730624-5 (Version None)
Quarter: 2011Q3

REPORT INFORMATION
  Report Type: 
  Country: None (occurrence: None)
  Receive Date: 20110906
  Receipt Date: 20110830
  Transmission Date: 20111222
  Serious: Yes (Other)
  Sender: FDA-Public Use
  Company Number: CA-JNJFOC-20110613136

PATIENT
  Sex: Female
  Weight: 74 kg

DRUGS (3)
  1. REMICADE [Suspect]
     Indication: CROHN'S DISEASE
     Route: 042
     Dates: start: 20110810
  2. REMICADE [Suspect]
     Route: 042
     Dates: start: 20081001
  3. IMURAN [Concomitant]

REACTIONS (5)
  - PAIN IN EXTREMITY [None]
  - PYREXIA [None]
  - ARTHRITIS [None]
  - OEDEMA PERIPHERAL [None]
  - VOMITING [None]
